FAERS Safety Report 15812568 (Version 1)
Quarter: 2019Q1

REPORT INFORMATION
  Report Type: Report from Study
  Country: US (occurrence: US)
  Receive Date: 20190111
  Receipt Date: 20190111
  Transmission Date: 20190417
  Serious: Yes (Hospitalization)
  Sender: FDA-Public Use
  Company Number: US-SAKK-2019SA000871AA

PATIENT
  Age: 54 Year
  Sex: Male

DRUGS (2)
  1. INSULIN GLARGINE [Suspect]
     Active Substance: INSULIN GLARGINE
     Indication: DIABETES MELLITUS
     Dosage: 30 UNITS EVERY MORNING AT 9 AM AND 10 UNITS EVERY NIGHT AT 9 PM
     Route: 058
  2. NOVOLOG [Suspect]
     Active Substance: INSULIN ASPART
     Indication: DIABETES MELLITUS
     Dosage: 10 UNITS SQ DAILY AT 8 AM, 21 UNITS SQ DAILY AT 12 NOON, 25 UNITS SQ DAILY AT 5 PM, AND NOVOLOG CORR
     Route: 058

REACTIONS (5)
  - Left ventricular dysfunction [Recovered/Resolved]
  - Dry eye [Not Recovered/Not Resolved]
  - Fluid retention [Recovered/Resolved]
  - Wound [Not Recovered/Not Resolved]
  - Photophobia [Not Recovered/Not Resolved]

NARRATIVE: CASE EVENT DATE: 201809
